FAERS Safety Report 13403893 (Version 2)
Quarter: 2017Q2

REPORT INFORMATION
  Report Type: Spontaneous
  Country: US (occurrence: US)
  Receive Date: 20170405
  Receipt Date: 20170405
  Transmission Date: 20170830
  Serious: Yes (Other)
  Sender: FDA-Public Use
  Company Number: US-BRISTOL-MYERS SQUIBB COMPANY-BMS-2017-026156

PATIENT

DRUGS (1)
  1. WARFARIN SODIUM. [Suspect]
     Active Substance: WARFARIN SODIUM
     Indication: CATHETER REMOVAL
     Route: 065

REACTIONS (4)
  - Haemorrhage [Unknown]
  - Haematoma [Unknown]
  - Transient ischaemic attack [Unknown]
  - Cardiac tamponade [Unknown]
